FAERS Safety Report 18675951 (Version 2)
Quarter: 2021Q1

REPORT INFORMATION
  Report Type: Spontaneous
  Country: AU (occurrence: AU)
  Receive Date: 20201229
  Receipt Date: 20210322
  Transmission Date: 20210419
  Serious: Yes (Hospitalization)
  Sender: FDA-Public Use
  Company Number: AU-MYLANLABS-2020M1104720

PATIENT
  Age: 49 Year
  Sex: Female

DRUGS (2)
  1. CLOZARIL [Suspect]
     Active Substance: CLOZAPINE
     Dosage: 400 MILLIGRAM
     Route: 048
     Dates: start: 20201007
  2. CLOZARIL [Suspect]
     Active Substance: CLOZAPINE
     Indication: SCHIZOPHRENIA
     Dosage: 350 MILLIGRAM
     Route: 048
     Dates: start: 20201007

REACTIONS (4)
  - Hospitalisation [Unknown]
  - Gamma-glutamyltransferase increased [Not Recovered/Not Resolved]
  - Eosinophil count increased [Recovered/Resolved]
  - Alanine aminotransferase increased [Not Recovered/Not Resolved]

NARRATIVE: CASE EVENT DATE: 20201103
